FAERS Safety Report 5968467-5 (Version None)
Quarter: 2008Q4

REPORT INFORMATION
  Report Type: 
  Country: None (occurrence: None)
  Receive Date: 20081121
  Receipt Date: 20081121
  Transmission Date: 20090506
  Serious: Yes (Death)
  Sender: FDA-Public Use
  Company Number: None

PATIENT
  Age: 70 Year
  Sex: Male
  Weight: 80.1 kg

DRUGS (10)
  1. COUMADIN [Suspect]
     Indication: DEEP VEIN THROMBOSIS
     Dosage: 6 MG DAILY PO
     Route: 048
  2. LOPRESSOR [Concomitant]
  3. RENAGEL [Concomitant]
  4. ZOCOR [Concomitant]
  5. ADALAT [Concomitant]
  6. PRILOSEC [Concomitant]
  7. SENNA [Concomitant]
  8. PRINIVIL [Concomitant]
  9. NEPHROVITE [Concomitant]
  10. FERROUS SULFATE TAB [Concomitant]

REACTIONS (10)
  - ABDOMINAL PAIN [None]
  - ACUTE CORONARY SYNDROME [None]
  - ANAEMIA [None]
  - ANOXIC ENCEPHALOPATHY [None]
  - CARDIO-RESPIRATORY ARREST [None]
  - DRUG TOXICITY [None]
  - INTERNATIONAL NORMALISED RATIO INCREASED [None]
  - NAUSEA [None]
  - RETROPERITONEAL HAEMORRHAGE [None]
  - SHOCK HAEMORRHAGIC [None]
